FAERS Safety Report 9724740 (Version 1)
Quarter: 2013Q4

REPORT INFORMATION
  Report Type: Spontaneous
  Country: DE (occurrence: DE)
  Receive Date: 20131202
  Receipt Date: 20131202
  Transmission Date: 20140711
  Serious: Yes (Hospitalization)
  Sender: FDA-Public Use
  Company Number: DE-FRI-1000051821

PATIENT
  Sex: Female

DRUGS (5)
  1. MEMANTINE [Suspect]
     Indication: DEMENTIA ALZHEIMER^S TYPE
     Dosage: 20 MG
     Dates: start: 201305, end: 201308
  2. MEMANTINE [Suspect]
     Indication: VASCULAR DEMENTIA
  3. ARICEPT [Suspect]
     Indication: DEMENTIA ALZHEIMER^S TYPE
     Dosage: 10 MG
     Dates: start: 201305, end: 201308
  4. ARICEPT [Suspect]
     Indication: VASCULAR DEMENTIA
  5. ACETYLSALICYLIC ACID [Concomitant]
     Indication: ANTICOAGULANT THERAPY

REACTIONS (3)
  - Oesophagitis haemorrhagic [Recovered/Resolved]
  - Confusional state [Recovering/Resolving]
  - Off label use [Unknown]
